FAERS Safety Report 8027776-9 (Version None)
Quarter: 2012Q1

REPORT INFORMATION
  Report Type: 
  Country: None (occurrence: None)
  Receive Date: 20120106
  Receipt Date: 20120103
  Transmission Date: 20120608
  Serious: Yes (Death)
  Sender: FDA-Public Use
  Company Number: US-CELGENEUS-163-21880-12010299

PATIENT
  Sex: Male
  Weight: 71.732 kg

DRUGS (8)
  1. DEXAMETHASONE [Concomitant]
     Dosage: .5 MILLIGRAM
     Route: 065
  2. PRILOSEC [Concomitant]
     Dosage: 10 MILLIGRAM
     Route: 065
  3. FENTANYL [Concomitant]
     Dosage: 75 MICROGRAM
     Route: 062
  4. VICODIN [Concomitant]
     Dosage: 5MG/500MG
     Route: 065
  5. REVLIMID [Suspect]
     Indication: MULTIPLE MYELOMA
     Dosage: 15 MILLIGRAM
     Route: 048
     Dates: start: 20110802, end: 20110909
  6. SENNA [Concomitant]
     Dosage: 8.6 MILLIGRAM
     Route: 065
  7. ASPIRIN [Concomitant]
     Dosage: 81 MILLIGRAM
     Route: 065
  8. ATENOLOL [Concomitant]
     Dosage: 25 MILLIGRAM
     Route: 065

REACTIONS (1)
  - DEATH [None]
